FAERS Safety Report 17861879 (Version 2)
Quarter: 2021Q1

REPORT INFORMATION
  Report Type: Spontaneous
  Country: US (occurrence: US)
  Receive Date: 20200604
  Receipt Date: 20210105
  Transmission Date: 20210419
  Serious: Yes (Other)
  Sender: FDA-Public Use
  Company Number: US-ASTRAZENECA-2020SE71627

PATIENT
  Age: 22331 Day
  Sex: Male
  Weight: 89.4 kg

DRUGS (19)
  1. LISINOPRIL. [Concomitant]
     Active Substance: LISINOPRIL
  2. OMEPRAZOLE. [Concomitant]
     Active Substance: OMEPRAZOLE
  3. TRAMADOL. [Concomitant]
     Active Substance: TRAMADOL
  4. GLIPIZIDE. [Concomitant]
     Active Substance: GLIPIZIDE
  5. ATORVASTATIN [Concomitant]
     Active Substance: ATORVASTATIN
  6. WARFARIN [Concomitant]
     Active Substance: WARFARIN
  7. ASPIRIN. [Concomitant]
     Active Substance: ASPIRIN
  8. FENOFIBRATE. [Concomitant]
     Active Substance: FENOFIBRATE
  9. GEMFIBROZIL. [Concomitant]
     Active Substance: GEMFIBROZIL
  10. FLUOROMETHOLONE. [Concomitant]
     Active Substance: FLUOROMETHOLONE
  11. PERCOCET [Concomitant]
     Active Substance: ACETAMINOPHEN\OXYCODONE HYDROCHLORIDE
  12. AMOXICILLIN. [Concomitant]
     Active Substance: AMOXICILLIN
  13. LANSOPRAZOLE. [Concomitant]
     Active Substance: LANSOPRAZOLE
  14. DICYCLOMINE [Concomitant]
     Active Substance: DICYCLOMINE HYDROCHLORIDE
  15. IBUPROFEN. [Concomitant]
     Active Substance: IBUPROFEN
  16. KOMBIGLYZE XR [Suspect]
     Active Substance: METFORMIN HYDROCHLORIDE\SAXAGLIPTIN HYDROCHLORIDE
     Indication: TYPE 2 DIABETES MELLITUS
     Dosage: 5 MG?500 MG DAILY.
     Route: 048
     Dates: start: 20150309
  17. METOPROLOL. [Concomitant]
     Active Substance: METOPROLOL
  18. KOMBIGLYZE XR [Suspect]
     Active Substance: METFORMIN HYDROCHLORIDE\SAXAGLIPTIN HYDROCHLORIDE
     Indication: TYPE 2 DIABETES MELLITUS
     Dosage: 5 MG?500 MG
     Route: 048
     Dates: start: 20150309, end: 20160229
  19. PANTOPRAZOLE [Concomitant]
     Active Substance: PANTOPRAZOLE

REACTIONS (3)
  - Cardiac failure congestive [Unknown]
  - Diastolic dysfunction [Unknown]
  - Cardiac failure [Unknown]

NARRATIVE: CASE EVENT DATE: 20160120
